FAERS Safety Report 10022074 (Version 3)
Quarter: 2014Q2

REPORT INFORMATION
  Report Type: Spontaneous
  Country: US (occurrence: US)
  Receive Date: 20140319
  Receipt Date: 20140513
  Transmission Date: 20141212
  Serious: Yes (Other)
  Sender: FDA-Public Use
  Company Number: US-GLAXOSMITHKLINE-A1063889A

PATIENT
  Age: 50 Year
  Sex: Female
  Weight: 102.3 kg

DRUGS (4)
  1. POTIGA [Suspect]
     Indication: CONVULSION
     Dosage: 700MG AT NIGHT
     Route: 048
     Dates: start: 20071109
  2. KEPPRA [Concomitant]
     Indication: CONVULSION
     Dosage: 2000MG AT NIGHT
     Route: 048
     Dates: start: 2008
  3. LAMICTAL [Concomitant]
     Indication: CONVULSION
     Dosage: 800MG AT NIGHT
     Route: 048
     Dates: start: 2001
  4. KLONOPIN [Concomitant]
     Indication: CONVULSION
     Dosage: 4MG AT NIGHT
     Route: 048

REACTIONS (5)
  - Macular dystrophy congenital [Unknown]
  - Maculopathy [Unknown]
  - Maculopathy [Unknown]
  - Retinal pigment epitheliopathy [Unknown]
  - Toxicity to various agents [Unknown]
